FAERS Safety Report 16402154 (Version 1)
Quarter: 2019Q2

REPORT INFORMATION
  Report Type: Spontaneous
  Country: CH (occurrence: CH)
  Receive Date: 20190607
  Receipt Date: 20190607
  Transmission Date: 20190711
  Serious: Yes (Hospitalization)
  Sender: FDA-Public Use
  Company Number: IND-CH-009507513-1905CHE013775

PATIENT
  Age: 56 Year
  Sex: Male

DRUGS (12)
  1. NOPIL [Concomitant]
     Active Substance: SULFAMETHOXAZOLE\TRIMETHOPRIM
     Dosage: 3X/WEEK 1 TABLET
     Dates: start: 20190513
  2. CANCIDAS [Concomitant]
     Active Substance: CASPOFUNGIN ACETATE
     Dates: start: 20190316
  3. PLAVIX [Concomitant]
     Active Substance: CLOPIDOGREL BISULFATE
     Dosage: 75MG ONCE DAILY
  4. ARCOXIA [Suspect]
     Active Substance: ETORICOXIB
     Dosage: AS NECESSARY, APPROXIMATELY 3-4 X FROM 30-APR TO 07-MAY-2019
     Route: 048
     Dates: start: 20190430, end: 20190507
  5. CRESEMBA [Suspect]
     Active Substance: ISAVUCONAZONIUM SULFATE
     Dosage: INSTEAD: POSACONAZOLE (NOXAFIL) 09-MAY-2019 TO DATE
     Route: 048
     Dates: start: 20190322, end: 20190508
  6. VALTREX [Concomitant]
     Active Substance: VALACYCLOVIR HYDROCHLORIDE
     Dosage: 500MG TWICE DAILY
     Dates: start: 20190513
  7. PREGABALIN. [Suspect]
     Active Substance: PREGABALIN
     Dosage: 25 MILLIGRAM, Q12H, TWICE DAILY
     Dates: end: 20190507
  8. AUGMENTIN [Suspect]
     Active Substance: AMOXICILLIN\CLAVULANATE POTASSIUM
     Dosage: UNK
     Route: 048
     Dates: start: 20190430, end: 20190502
  9. VALTREX [Concomitant]
     Active Substance: VALACYCLOVIR HYDROCHLORIDE
     Dosage: 500MG TWICE DAILY
     Dates: end: 20190509
  10. PANTOZOL [Suspect]
     Active Substance: PANTOPRAZOLE SODIUM
     Dosage: 40 MILLIGRAM, QD
     Route: 048
     Dates: end: 20190507
  11. NOPIL [Concomitant]
     Active Substance: SULFAMETHOXAZOLE\TRIMETHOPRIM
     Dosage: 3X/WEEK 1 TABLET
     Dates: end: 20190509
  12. TAVANIC [Concomitant]
     Active Substance: LEVOFLOXACIN
     Dates: start: 20190503, end: 20190507

REACTIONS (1)
  - Agranulocytosis [Recovered/Resolved]

NARRATIVE: CASE EVENT DATE: 20190503
